FAERS Safety Report 14148521 (Version 1)
Quarter: 2017Q4

REPORT INFORMATION
  Report Type: Spontaneous
  Country: US (occurrence: US)
  Receive Date: 20171031
  Receipt Date: 20171031
  Transmission Date: 20180321
  Serious: Yes (Death)
  Sender: FDA-Public Use
  Company Number: None

PATIENT
  Age: 65 Year
  Sex: Female

DRUGS (7)
  1. MEGESTROL ACETATE. [Concomitant]
     Active Substance: MEGESTROL ACETATE
  2. OMEPRAZOLE. [Concomitant]
     Active Substance: OMEPRAZOLE
  3. ATENOLOL. [Concomitant]
     Active Substance: ATENOLOL
  4. IBUPROFEN. [Concomitant]
     Active Substance: IBUPROFEN
  5. ANASTROZOLE. [Concomitant]
     Active Substance: ANASTROZOLE
  6. ONDANSETRON [Suspect]
     Active Substance: ONDANSETRON
     Indication: BREAST CANCER FEMALE
     Dosage: ?          OTHER FREQUENCY:INFUSE; INTRAVENOUS (NOT OTHERWISE SPECIFIED)?
     Route: 042
  7. MULTIVITAMIN AND MINERAL [Concomitant]

REACTIONS (1)
  - Death [None]
